FAERS Safety Report 18453385 (Version 3)
Quarter: 2021Q1

REPORT INFORMATION
  Report Type: Spontaneous
  Country: BG (occurrence: BG)
  Receive Date: 20201102
  Receipt Date: 20210104
  Transmission Date: 20210419
  Serious: Yes (Death, Hospitalization, Other)
  Sender: FDA-Public Use
  Company Number: BG-PFIZER INC-2020416251

PATIENT
  Age: 6 Year
  Sex: Female
  Weight: 20 kg

DRUGS (9)
  1. ENALAPRIL [Suspect]
     Active Substance: ENALAPRIL
     Dosage: UNK
     Dates: start: 20200924, end: 2020
  2. IMMUNOVENIN [Concomitant]
     Active Substance: HUMAN IMMUNOGLOBULIN G
     Dosage: UNK
     Dates: start: 202001
  3. BLINCYTO [Suspect]
     Active Substance: BLINATUMOMAB
     Indication: ACUTE LYMPHOCYTIC LEUKAEMIA
     Dosage: UNK
     Route: 042
     Dates: start: 20200924, end: 2020
  4. SPIRONOLACTON [Suspect]
     Active Substance: SPIRONOLACTONE
     Dosage: UNK
     Dates: start: 20200924, end: 2020
  5. BLINCYTO [Suspect]
     Active Substance: BLINATUMOMAB
     Indication: B PRECURSOR TYPE ACUTE LEUKAEMIA
  6. PLATELETS [Concomitant]
     Active Substance: HUMAN PLATELET, ALLOGENIC
     Dosage: UNK
  7. ERYTHROCYTES [Concomitant]
     Active Substance: HUMAN RED BLOOD CELL
     Dosage: UNK
  8. AMLODIPINE BESILATE [Suspect]
     Active Substance: AMLODIPINE BESYLATE
     Dosage: UNK
     Dates: start: 20200924, end: 2020
  9. FURANTRIL [Suspect]
     Active Substance: FUROSEMIDE
     Dosage: UNK
     Dates: start: 20200924, end: 2020

REACTIONS (46)
  - Multiple organ dysfunction syndrome [Fatal]
  - Pericardial effusion [Fatal]
  - Platelet count decreased [Fatal]
  - Bilirubin conjugated increased [Unknown]
  - Alanine aminotransferase decreased [Unknown]
  - Blood fibrinogen decreased [Unknown]
  - Catheter site haemorrhage [Fatal]
  - Irritability [Fatal]
  - Pyrexia [Fatal]
  - White blood cell count decreased [Unknown]
  - Neutrophil count decreased [Unknown]
  - Lymphocyte count decreased [Unknown]
  - Haemoglobin decreased [Unknown]
  - Haematocrit decreased [Unknown]
  - Gamma-glutamyltransferase increased [Unknown]
  - Red blood cell count decreased [Unknown]
  - Somnolence [Fatal]
  - Vomiting [Fatal]
  - Blood lactate dehydrogenase increased [Unknown]
  - Mean cell haemoglobin decreased [Unknown]
  - Red blood cell sedimentation rate increased [Unknown]
  - Acute respiratory failure [Fatal]
  - Acute kidney injury [Fatal]
  - Blood pressure increased [Fatal]
  - Interleukin level increased [Fatal]
  - Activated partial thromboplastin time prolonged [Unknown]
  - Blood alkaline phosphatase increased [Unknown]
  - Protein total decreased [Unknown]
  - Muscle twitching [Fatal]
  - Haptoglobin decreased [Fatal]
  - Blood bilirubin increased [Unknown]
  - Reticulocyte count increased [Unknown]
  - Red cell distribution width increased [Unknown]
  - Mean cell volume decreased [Unknown]
  - Pneumothorax [Fatal]
  - Haemorrhagic disorder [Fatal]
  - Circulatory collapse [Fatal]
  - Acute lymphocytic leukaemia recurrent [Fatal]
  - Face oedema [Fatal]
  - Mean platelet volume increased [Unknown]
  - Blood urea increased [Unknown]
  - Melaena [Fatal]
  - Leukaemic infiltration renal [Fatal]
  - Pleural effusion [Fatal]
  - Monocyte count decreased [Unknown]
  - C-reactive protein increased [Unknown]

NARRATIVE: CASE EVENT DATE: 2020
